FAERS Safety Report 6348083-6 (Version None)
Quarter: 2009Q3

REPORT INFORMATION
  Report Type: 
  Country: None (occurrence: None)
  Receive Date: 20090908
  Receipt Date: 20090831
  Transmission Date: 20100115
  Serious: Yes (Hospitalization)
  Sender: FDA-Public Use
  Company Number: 2009SP015442

PATIENT
  Age: 67 Year
  Sex: Male
  Weight: 86.2 kg

DRUGS (14)
  1. TEMODAL [Suspect]
     Indication: MYELODYSPLASTIC SYNDROME
     Dosage: 400 MG; QD; PO
     Route: 048
     Dates: start: 20090609, end: 20090814
  2. BISOPROLOL FUMARATE [Suspect]
     Indication: HYPERTENSION
     Dosage: 2.5 MG;QD
  3. LIPITOR [Suspect]
     Indication: HYPERCHOLESTEROLAEMIA
     Dosage: 10 MG;QD
     Dates: start: 20010101
  4. NEURONTIN [Suspect]
     Indication: HEADACHE
     Dosage: 600 MG;BID;  800 MG;HS
     Dates: start: 20050101
  5. NEURONTIN [Suspect]
     Indication: HEADACHE
     Dosage: 600 MG;BID;  800 MG;HS
     Dates: start: 20050101
  6. LASIX [Suspect]
     Indication: LUNG DISORDER
     Dosage: 20 MG
     Dates: start: 20090101
  7. PANTOPRAZOLE SODIUM [Suspect]
     Indication: GASTROOESOPHAGEAL REFLUX DISEASE
     Dosage: 40 MG;QD
     Dates: start: 20070101
  8. PROSCAR [Suspect]
     Dosage: 5 MG;QD
     Dates: start: 20070101
  9. FLOMAX [Suspect]
     Indication: BENIGN PROSTATIC HYPERPLASIA
     Dosage: 0.4 MG;QD
     Dates: start: 20070101
  10. TYLENOL [Suspect]
     Indication: HYPERTHERMIA
     Dosage: 500 MG;PRN
     Dates: start: 20090101
  11. TYLENOL [Suspect]
     Indication: PAIN
     Dosage: 500 MG;PRN
     Dates: start: 20090101
  12. CLAVULIN (NO PREF. NAME) [Suspect]
     Indication: MYOSITIS
     Dates: start: 20090703, end: 20090707
  13. FLAGYL [Suspect]
     Indication: MYOSITIS
     Dates: start: 20090710
  14. DIFLUCAN [Suspect]
     Indication: MYOSITIS
     Dates: start: 20090710

REACTIONS (4)
  - CELLULITIS [None]
  - GAIT DISTURBANCE [None]
  - GROIN PAIN [None]
  - PYOMYOSITIS [None]
